FAERS Safety Report 14394628 (Version 1)
Quarter: 2018Q1

REPORT INFORMATION
  Report Type: Spontaneous
  Country: FR (occurrence: FR)
  Receive Date: 20180116
  Receipt Date: 20180116
  Transmission Date: 20180509
  Serious: Yes (Hospitalization)
  Sender: FDA-Public Use
  Company Number: FR-PFIZER INC-2018013061

PATIENT
  Age: 60 Year
  Sex: Female

DRUGS (4)
  1. AMLODIPINE [Suspect]
     Active Substance: AMLODIPINE BESYLATE
     Dosage: 130 MG, UNK
     Route: 048
     Dates: start: 20170909
  2. TRAMADOL BASICS [Suspect]
     Active Substance: TRAMADOL
     Dosage: 4 DF, UNK
     Route: 048
     Dates: start: 20170909
  3. LEVOTHYROX [Suspect]
     Active Substance: LEVOTHYROXINE
     Dosage: 1 DF, UNK
     Route: 048
     Dates: start: 20170909
  4. LORMETAZEPAM [Suspect]
     Active Substance: LORMETAZEPAM
     Dosage: 5 DF, UNK
     Route: 048
     Dates: start: 20170909

REACTIONS (4)
  - Poisoning deliberate [Recovered/Resolved]
  - Confusional state [Recovered/Resolved]
  - Product use issue [Unknown]
  - Somnolence [Recovered/Resolved]

NARRATIVE: CASE EVENT DATE: 20170909
